FAERS Safety Report 5073276-8 (Version None)
Quarter: 2006Q3

REPORT INFORMATION
  Report Type: 
  Country: None (occurrence: None)
  Receive Date: 20060808
  Receipt Date: 20060727
  Transmission Date: 20061208
  Serious: Yes (Hospitalization)
  Sender: FDA-Public Use
  Company Number: FR-BRISTOL-MYERS SQUIBB COMPANY-13459508

PATIENT
  Age: 73 Year
  Sex: Female

DRUGS (3)
  1. GLUCOPHAGE [Suspect]
     Indication: DIABETES MELLITUS
     Route: 048
  2. DIAMICRON [Suspect]
     Indication: DIABETES MELLITUS
  3. LANTUS [Suspect]
     Indication: DIABETES MELLITUS
     Dosage: LANTUS WAS RE-INTRODUCED AND THEN STOPPED AGAIN ON 23-NOV-2005
     Route: 058
     Dates: start: 20050520

REACTIONS (2)
  - HENOCH-SCHONLEIN PURPURA [None]
  - NEPHROTIC SYNDROME [None]
